FAERS Safety Report 5920313-1 (Version None)
Quarter: 2008Q4

REPORT INFORMATION
  Report Type: 
  Country: None (occurrence: None)
  Receive Date: 20081016
  Receipt Date: 20081007
  Transmission Date: 20090506
  Serious: Yes (Disabling)
  Sender: FDA-Public Use
  Company Number: PHHY2008BR18304

PATIENT
  Age: 66 Year
  Sex: Female

DRUGS (3)
  1. STALEVO 100 [Suspect]
     Indication: PARKINSON'S DISEASE
     Dosage: 100/25/200 MG
     Route: 048
  2. COMTAN [Suspect]
  3. LEVODOPA [Concomitant]

REACTIONS (3)
  - DRUG INEFFECTIVE [None]
  - HYPERSENSITIVITY [None]
  - PARALYSIS [None]
